FAERS Safety Report 8211476-6 (Version None)
Quarter: 2012Q1

REPORT INFORMATION
  Report Type: 
  Country: None (occurrence: None)
  Receive Date: 20120315
  Receipt Date: 20120302
  Transmission Date: 20120608
  Serious: Yes (Death)
  Sender: FDA-Public Use
  Company Number: US-PFIZER INC-2012034513

PATIENT
  Age: 42 Year
  Sex: Male
  Weight: 97 kg

DRUGS (6)
  1. MORPHINE SULFATE [Suspect]
     Indication: PAIN
  2. OXYCODONE HYDROCHLORIDE [Suspect]
     Indication: PAIN
     Dosage: 30 MG, UNK
  3. CARBAMAZEPINE [Suspect]
  4. DIAZEPAM [Suspect]
  5. ALPRAZOLAM [Suspect]
  6. OXYCONTIN [Suspect]
     Indication: PAIN

REACTIONS (1)
  - MULTIPLE DRUG OVERDOSE ACCIDENTAL [None]
